FAERS Safety Report 22969367 (Version 4)
Quarter: 2023Q4

REPORT INFORMATION
  Report Type: Spontaneous
  Country: US (occurrence: US)
  Receive Date: 20230922
  Receipt Date: 20231228
  Transmission Date: 20240110
  Serious: Yes (Other)
  Sender: FDA-Public Use
  Company Number: US-ABBVIE-5417623

PATIENT
  Age: 70 Year
  Sex: Female
  Weight: 73 kg

DRUGS (2)
  1. IMBRUVICA [Suspect]
     Active Substance: IBRUTINIB
     Indication: Non-Hodgkin^s lymphoma
     Dosage: TAKE ONE TAB DAILY FOR 28 DAYS ONE TABLET SHOULD BE TAKEN WITH A GLASS OF WATER
     Route: 048
  2. IRON [Concomitant]
     Active Substance: IRON
     Indication: Product used for unknown indication
     Route: 065

REACTIONS (9)
  - Pulmonary oedema [Recovered/Resolved]
  - Contrast media allergy [Unknown]
  - Diabetes mellitus [Unknown]
  - Peripheral swelling [Recovered/Resolved]
  - Joint swelling [Unknown]
  - Dermatitis allergic [Recovered/Resolved]
  - Rash [Unknown]
  - Joint swelling [Recovered/Resolved]
  - Peripheral swelling [Unknown]

NARRATIVE: CASE EVENT DATE: 20210513
